FAERS Safety Report 5311905-1 (Version None)
Quarter: 2007Q2

REPORT INFORMATION
  Report Type: 
  Country: None (occurrence: None)
  Receive Date: 20070430
  Receipt Date: 20060330
  Transmission Date: 20071010
  Serious: No
  Sender: FDA-Public Use
  Company Number: 2006UW05608

PATIENT
  Age: 56 Year
  Sex: Female
  Weight: 70.8 kg

DRUGS (22)
  1. NEXIUM [Suspect]
     Indication: DYSPHAGIA
     Route: 048
  2. NEXIUM [Suspect]
     Indication: ERUCTATION
     Route: 048
  3. NEXIUM [Suspect]
     Indication: GASTROOESOPHAGEAL REFLUX DISEASE
     Route: 048
  4. RANITIDINE [Concomitant]
  5. QUININE [Concomitant]
  6. CHROMIUM [Concomitant]
  7. ATENOLOL [Concomitant]
  8. GREEN TEA [Concomitant]
  9. XANAX [Concomitant]
  10. ALPRAZOLAM [Concomitant]
  11. VITAMIN E [Concomitant]
  12. VITAMIN B-12 [Concomitant]
  13. ASCORBIC ACID [Concomitant]
  14. CALTRATE [Concomitant]
  15. GREEN ZONE [Concomitant]
  16. GABAPENTIN [Concomitant]
  17. BENADRYL [Concomitant]
  18. GNC VITAMINS [Concomitant]
     Indication: HAIR DISORDER
  19. GNC VITAMINS [Concomitant]
     Indication: SKIN DISORDER
  20. GNC VITAMINS [Concomitant]
     Indication: NAIL DISORDER
  21. AMBIEN [Concomitant]
  22. PEPCID AC [Concomitant]

REACTIONS (3)
  - CHEST PAIN [None]
  - DYSPHAGIA [None]
  - PRURITUS [None]
